FAERS Safety Report 9207546 (Version 1)
Quarter: 2013Q2

REPORT INFORMATION
  Report Type: Spontaneous
  Country: US (occurrence: None)
  Receive Date: 20130402
  Receipt Date: 20130402
  Transmission Date: 20140414
  Serious: Yes (Life-Threatening, Hospitalization)
  Sender: FDA-Public Use
  Company Number: None

PATIENT
  Age: 63 Year
  Sex: Male
  Weight: 103.2 kg

DRUGS (1)
  1. ACYCLOVIR [Suspect]
     Indication: HERPES ZOSTER
     Dosage: 5 TIMES DAILY
     Route: 048
     Dates: start: 20130326, end: 20130328

REACTIONS (5)
  - Subdural haematoma [None]
  - Speech disorder [None]
  - Convulsion [None]
  - Fall [None]
  - Hypotension [None]
